FAERS Safety Report 8442975-X (Version None)
Quarter: 2012Q2

REPORT INFORMATION
  Report Type: 
  Country: None (occurrence: None)
  Receive Date: 20120615
  Receipt Date: 20120612
  Transmission Date: 20120825
  Serious: Yes (Hospitalization)
  Sender: FDA-Public Use
  Company Number: DE-ELI_LILLY_AND_COMPANY-DE201206004025

PATIENT
  Sex: Female

DRUGS (5)
  1. DIURETICS [Concomitant]
     Dosage: UNK
     Route: 065
  2. MARCUMAR [Concomitant]
     Dosage: UNK
  3. LISIHEXAL [Concomitant]
     Dosage: UNK
  4. FORTEO [Suspect]
     Indication: OSTEOPOROSIS
     Dosage: UNK, QD
     Route: 058
     Dates: start: 20110613
  5. BISOPROLOL FUMARATE [Concomitant]
     Dosage: UNK

REACTIONS (4)
  - URINARY TRACT INFLAMMATION [None]
  - URETERIC OBSTRUCTION [None]
  - HYDRONEPHROSIS [None]
  - INJECTION SITE HAEMATOMA [None]
